FAERS Safety Report 10968358 (Version 1)
Quarter: 2015Q1

REPORT INFORMATION
  Report Type: Spontaneous
  Country: US (occurrence: US)
  Receive Date: 20150330
  Receipt Date: 20150330
  Transmission Date: 20150721
  Serious: Yes (Other)
  Sender: FDA-Public Use
  Company Number: PHHY2015US032625

PATIENT
  Age: 52 Year
  Sex: Female

DRUGS (3)
  1. CHLORTALIDONE [Suspect]
     Active Substance: CHLORTHALIDONE
     Indication: PRODUCT USED FOR UNKNOWN INDICATION
     Route: 065
  2. LITHIUM [Concomitant]
     Active Substance: LITHIUM CARBONATE
     Indication: PRODUCT USED FOR UNKNOWN INDICATION
     Route: 065
  3. FLUPHENAZINE [Concomitant]
     Active Substance: FLUPHENAZINE
     Indication: PRODUCT USED FOR UNKNOWN INDICATION
     Route: 065

REACTIONS (7)
  - Polyuria [Unknown]
  - Asthenia [Unknown]
  - Hyponatraemia [Unknown]
  - Nephrogenic diabetes insipidus [Unknown]
  - Urine osmolarity decreased [Unknown]
  - Water intoxication [Unknown]
  - Fatigue [Unknown]
